FAERS Safety Report 13114245 (Version 1)
Quarter: 2017Q1

REPORT INFORMATION
  Report Type: Spontaneous
  Country: US (occurrence: US)
  Receive Date: 20170113
  Receipt Date: 20170113
  Transmission Date: 20170428
  Serious: Yes (Other)
  Sender: FDA-Public Use
  Company Number: US-PFIZER INC-2017015749

PATIENT
  Age: 61 Year
  Sex: Female
  Weight: 108.86 kg

DRUGS (1)
  1. LYRICA [Suspect]
     Active Substance: PREGABALIN
     Indication: DIABETIC NEPHROPATHY
     Dosage: 50MG, 2X/DAY (50 MG, ONE CAPSULE TWICE A DAY)
     Route: 048

REACTIONS (1)
  - Weight increased [Not Recovered/Not Resolved]

NARRATIVE: CASE EVENT DATE: 2016
